FAERS Safety Report 7712364-1 (Version None)
Quarter: 2011Q3

REPORT INFORMATION
  Report Type: 
  Country: None (occurrence: None)
  Receive Date: 20110826
  Receipt Date: 20110818
  Transmission Date: 20111222
  Serious: Yes (Death)
  Sender: FDA-Public Use
  Company Number: FR-ROCHE-797928

PATIENT
  Age: 62 Year
  Sex: Male

DRUGS (2)
  1. TAXOL [Suspect]
     Dosage: DOSE: SECOND CYCLE
     Route: 065
     Dates: start: 20110224
  2. AVASTIN [Suspect]
     Dosage: DOSE: SECOND CYCLE  STRENGTH: 25 MG/ML
     Route: 065

REACTIONS (3)
  - MALAISE [None]
  - DYSPNOEA [None]
  - CARDIAC ARREST [None]
